FAERS Safety Report 4958120-9 (Version None)
Quarter: 2006Q1

REPORT INFORMATION
  Report Type: 
  Country: None (occurrence: None)
  Receive Date: 20060330
  Receipt Date: 20060327
  Transmission Date: 20060701
  Serious: Yes (Other)
  Sender: FDA-Public Use
  Company Number: US-AMGEN-US168229

PATIENT
  Sex: Female

DRUGS (2)
  1. ARANESP [Suspect]
     Indication: ANAEMIA OF MALIGNANT DISEASE
     Dates: start: 20051201
  2. NEULASTA [Concomitant]
     Indication: CHEMOTHERAPY

REACTIONS (2)
  - HAEMOGLOBIN DECREASED [None]
  - LEUKAEMIA [None]
